FAERS Safety Report 8299534-1 (Version None)
Quarter: 2012Q2

REPORT INFORMATION
  Report Type: 
  Country: None (occurrence: None)
  Receive Date: 20120419
  Receipt Date: 20120413
  Transmission Date: 20120825
  Serious: Yes (Other)
  Sender: FDA-Public Use
  Company Number: CHNY2012DE000544

PATIENT
  Age: 17 Year
  Sex: Male
  Weight: 65 kg

DRUGS (1)
  1. DEXTROMETHORPHAN UNKNOWN [Suspect]

REACTIONS (15)
  - ILLUSION [None]
  - NAUSEA [None]
  - MUSCULAR WEAKNESS [None]
  - TREMOR [None]
  - DECREASED APPETITE [None]
  - CRYING [None]
  - DIZZINESS [None]
  - HYPERVENTILATION [None]
  - PANIC ATTACK [None]
  - SLEEP DISORDER [None]
  - MYDRIASIS [None]
  - MOVEMENT DISORDER [None]
  - HEADACHE [None]
  - RESTLESSNESS [None]
  - HALLUCINATION [None]
